FAERS Safety Report 12835106 (Version 1)
Quarter: 2016Q4

REPORT INFORMATION
  Report Type: Spontaneous
  Country: RO (occurrence: RO)
  Receive Date: 20161010
  Receipt Date: 20161010
  Transmission Date: 20170207
  Serious: Yes (Death)
  Sender: FDA-Public Use
  Company Number: RO-ROCHE-1839807

PATIENT
  Age: 25 Year
  Sex: Female

DRUGS (2)
  1. AVASTIN [Suspect]
     Active Substance: BEVACIZUMAB
     Indication: GLIOBLASTOMA
     Dosage: AT 2 OR 4 WEEKS
     Route: 065
     Dates: start: 20160425, end: 20160606
  2. IRINOTECAN [Concomitant]
     Active Substance: IRINOTECAN
     Indication: GLIOBLASTOMA
     Dosage: ON DAY 1 AND DAY 15
     Route: 065

REACTIONS (3)
  - Death [Fatal]
  - Off label use [Fatal]
  - Diarrhoea [Unknown]

NARRATIVE: CASE EVENT DATE: 20160618
